FAERS Safety Report 17402140 (Version 5)
Quarter: 2020Q2

REPORT INFORMATION
  Report Type: Spontaneous
  Country: US (occurrence: US)
  Receive Date: 20200211
  Receipt Date: 20200401
  Transmission Date: 20200713
  Serious: Yes (Hospitalization)
  Sender: FDA-Public Use
  Company Number: US-PFIZER INC-2020056520

PATIENT
  Age: 69 Year
  Sex: Female
  Weight: 76.9 kg

DRUGS (2)
  1. DETROL LA [Suspect]
     Active Substance: TOLTERODINE TARTRATE
     Indication: URINARY INCONTINENCE
     Dosage: 4 MG, 2X/DAY
  2. DETROL LA [Suspect]
     Active Substance: TOLTERODINE TARTRATE
     Indication: SWELLING

REACTIONS (4)
  - Swelling [Unknown]
  - Hypoacusis [Unknown]
  - Peripheral swelling [Unknown]
  - Off label use [Unknown]
